FAERS Safety Report 4583754-3 (Version None)
Quarter: 2005Q1

REPORT INFORMATION
  Report Type: 
  Country: None (occurrence: None)
  Receive Date: 20050211
  Receipt Date: 20050131
  Transmission Date: 20050727
  Serious: Yes (Hospitalization)
  Sender: FDA-Public Use
  Company Number: 2005023695

PATIENT
  Age: 56 Year
  Sex: Male

DRUGS (5)
  1. CELEBREX [Suspect]
     Indication: RHEUMATOID ARTHRITIS
     Dosage: 400 MG (200 MG, 1 IN 2 D),
  2. SULFASALAZINE [Concomitant]
  3. METHOTREXATE [Concomitant]
  4. ALL OTHER THERAPEUTIC PRODUCTS (ALL OTHER THERAPEUTIC PRODUCTS) [Concomitant]
  5. ATORVASTATIN (ATORVASTATIN) [Concomitant]

REACTIONS (1)
  - ARTERIAL THROMBOSIS [None]
